FAERS Safety Report 12798914 (Version 1)
Quarter: 2016Q3

REPORT INFORMATION
  Report Type: Spontaneous
  Country: US (occurrence: US)
  Receive Date: 20160930
  Receipt Date: 20160930
  Transmission Date: 20161109
  Serious: Yes (Death, Hospitalization, Other)
  Sender: FDA-Public Use
  Company Number: US-APOTEX-2016AP012292

PATIENT
  Sex: Male

DRUGS (1)
  1. AMIODARONE HCL INJECTION [Suspect]
     Active Substance: AMIODARONE HYDROCHLORIDE
     Indication: ARRHYTHMIA SUPRAVENTRICULAR
     Dosage: UNK
     Route: 065

REACTIONS (4)
  - Superior vena cava occlusion [Unknown]
  - Mediastinal haemorrhage [Fatal]
  - Hyperthyroidism [Unknown]
  - Cardiac failure [Fatal]
